FAERS Safety Report 6471157-6 (Version None)
Quarter: 2009Q4

REPORT INFORMATION
  Report Type: 
  Country: None (occurrence: None)
  Receive Date: 20091203
  Receipt Date: 20080421
  Transmission Date: 20100525
  Serious: Yes (Life-Threatening, Hospitalization, Other)
  Sender: FDA-Public Use
  Company Number: DE-ELI_LILLY_AND_COMPANY-DE200802002723

PATIENT
  Sex: Male
  Weight: 55 kg

DRUGS (7)
  1. FORTEO [Suspect]
     Indication: OSTEOPOROSIS
     Dosage: 20 UG, DAILY (1/D)
     Route: 058
     Dates: start: 20071221, end: 20080103
  2. CALCIUM [Concomitant]
     Dosage: UNK, UNKNOWN
     Route: 065
     Dates: start: 20080201
  3. CALCIVIT D [Concomitant]
     Indication: OSTEOPOROSIS
     Dosage: UNK, UNKNOWN
     Route: 048
     Dates: start: 20071201
  4. PANTOZOL [Concomitant]
     Indication: GASTRITIS
     Dosage: 40 MG, DAILY (1/D)
     Route: 048
     Dates: start: 20071201
  5. DOMPERIDONE [Concomitant]
     Indication: VOMITING
     Dosage: 10 MG, 3/D
     Route: 048
     Dates: start: 20071201
  6. ACC /00082801/ [Concomitant]
     Dosage: 20 MG, DAILY (1/D)
     Route: 065
  7. CODEINE [Concomitant]
     Dosage: UNK, 3 X 5-10 TABLETS
     Route: 048

REACTIONS (7)
  - ASPIRATION [None]
  - ASTHENIA [None]
  - GASTRITIS [None]
  - HYPERHIDROSIS [None]
  - PNEUMONIA [None]
  - VOMITING [None]
  - WEIGHT DECREASED [None]
